FAERS Safety Report 5809044-6 (Version None)
Quarter: 2008Q3

REPORT INFORMATION
  Report Type: 
  Country: None (occurrence: None)
  Receive Date: 20080711
  Receipt Date: 20080711
  Transmission Date: 20090109
  Serious: Yes (Hospitalization)
  Sender: FDA-Public Use
  Company Number: None

PATIENT
  Sex: Male
  Weight: 80 kg

DRUGS (3)
  1. OXALIPLATIN [Suspect]
     Indication: GASTRIC CANCER
     Dosage: 50 MG/M2 IV
     Route: 042
     Dates: start: 20080512, end: 20080630
  2. TAXOTERE [Suspect]
     Dosage: 35 MG/M2 IV
     Route: 042
     Dates: start: 20080512, end: 20080630
  3. CAPECITABINE [Suspect]
     Indication: GASTRIC CANCER
     Dosage: 750 MG/M2 PO BID
     Route: 048
     Dates: start: 20080512, end: 20080702

REACTIONS (2)
  - DEEP VEIN THROMBOSIS [None]
  - PULMONARY EMBOLISM [None]
